FAERS Safety Report 18946654 (Version 1)
Quarter: 2021Q1

REPORT INFORMATION
  Report Type: Spontaneous
  Country: FR (occurrence: FR)
  Receive Date: 20210226
  Receipt Date: 20210226
  Transmission Date: 20210420
  Serious: Yes (Hospitalization)
  Sender: FDA-Public Use
  Company Number: FR-ELI_LILLY_AND_COMPANY-FR202102011240

PATIENT
  Age: 70 Year
  Sex: Female

DRUGS (5)
  1. ESIDREX [Concomitant]
     Active Substance: HYDROCHLOROTHIAZIDE
     Dosage: UNK, UNKNOWN
     Route: 048
  2. FLECAINE [Concomitant]
     Active Substance: FLECAINIDE
     Dosage: UNK, UNKNOWN
     Route: 048
  3. ALIMTA [Suspect]
     Active Substance: PEMETREXED DISODIUM
     Indication: BRONCHIAL CARCINOMA
     Dosage: 1 DOSAGE FORM, CYCLICAL
     Route: 041
     Dates: start: 202003, end: 20201210
  4. KARDEGIC [Concomitant]
     Active Substance: ASPIRIN DL-LYSINE
     Dosage: UNK UNK, UNKNOWN
     Route: 048
  5. RAMIPRIL. [Concomitant]
     Active Substance: RAMIPRIL
     Dosage: UNK, UNKNOWN
     Route: 048

REACTIONS (1)
  - Scleroderma-like reaction [Recovering/Resolving]

NARRATIVE: CASE EVENT DATE: 202007
